FAERS Safety Report 7283059-6 (Version None)
Quarter: 2011Q1

REPORT INFORMATION
  Report Type: 
  Country: None (occurrence: None)
  Receive Date: 20110209
  Receipt Date: 20110130
  Transmission Date: 20110831
  Serious: Yes (Other)
  Sender: FDA-Public Use
  Company Number: TW-ROCHE-663072

PATIENT
  Age: 55 Year
  Sex: Male

DRUGS (1)
  1. BEVACIZUMAB [Suspect]
     Dosage: 1.25 MG, UNK
     Route: 031

REACTIONS (3)
  - OCULAR VASCULAR DISORDER [None]
  - CEREBROVASCULAR ACCIDENT [None]
  - BLINDNESS [None]
